FAERS Safety Report 20694326 (Version 1)
Quarter: 2022Q2

REPORT INFORMATION
  Report Type: Spontaneous
  Country: US (occurrence: US)
  Receive Date: 20220411
  Receipt Date: 20220411
  Transmission Date: 20220721
  Serious: Yes (Other)
  Sender: FDA-Public Use
  Company Number: US-LUPIN PHARMACEUTICALS INC.-2022-05175

PATIENT
  Age: 54 Year
  Sex: Male

DRUGS (7)
  1. TRIAMCINOLONE [Suspect]
     Active Substance: TRIAMCINOLONE
     Indication: Granuloma
     Dosage: 1 DOSAGE FORM, SERIES OF 3 PERIOCULAR TRIAMCINOLONE INJECTIONS EVERY OTHER MONTH
     Route: 031
  2. TRIAMCINOLONE [Suspect]
     Active Substance: TRIAMCINOLONE
     Indication: Ocular sarcoidosis
  3. PREDNISONE [Suspect]
     Active Substance: PREDNISONE
     Indication: Granuloma
     Dosage: 60 MILLIGRAM, QD
     Route: 048
  4. PREDNISONE [Suspect]
     Active Substance: PREDNISONE
     Indication: Ocular sarcoidosis
  5. ADALIMUMAB [Concomitant]
     Active Substance: ADALIMUMAB
     Indication: Granuloma
     Dosage: UNK
     Route: 058
  6. ADALIMUMAB [Concomitant]
     Active Substance: ADALIMUMAB
     Indication: Psoriatic arthropathy
  7. ADALIMUMAB [Concomitant]
     Active Substance: ADALIMUMAB
     Indication: Ocular sarcoidosis

REACTIONS (2)
  - Drug ineffective for unapproved indication [Unknown]
  - Off label use [Unknown]
